FAERS Safety Report 6044433-9 (Version None)
Quarter: 2009Q1

REPORT INFORMATION
  Report Type: 
  Country: None (occurrence: None)
  Receive Date: 20090120
  Receipt Date: 20090114
  Transmission Date: 20090719
  Serious: Yes (Other)
  Sender: FDA-Public Use
  Company Number: US-ABBOTT-08P-163-0483392-00

PATIENT
  Sex: Female
  Weight: 74.91 kg

DRUGS (15)
  1. HUMIRA [Suspect]
     Indication: CROHN'S DISEASE
     Route: 058
     Dates: start: 20071001
  2. PROCRIT [Concomitant]
     Indication: HAEMOGLOBIN DECREASED
     Route: 050
  3. PREDNISONE [Concomitant]
     Indication: CROHN'S DISEASE
     Route: 048
  4. IMURAN [Concomitant]
     Indication: CROHN'S DISEASE
     Dosage: 2 TABS PER DAY
     Route: 048
  5. PENTASA [Concomitant]
     Indication: CROHN'S DISEASE
     Dosage: 2 CAPS QID
     Route: 048
  6. POTASSIUM CHLORIDE [Concomitant]
     Indication: MINERAL SUPPLEMENTATION
     Dosage: 2 TABS BID
     Route: 048
  7. GLIMEPIRIDE [Concomitant]
     Indication: DIABETES MELLITUS
     Route: 048
  8. INSULIN [Concomitant]
     Indication: DIABETES MELLITUS
     Dosage: SLIDING SCALE
     Route: 050
  9. PROTONIX [Concomitant]
     Indication: GASTRIC DISORDER
     Route: 048
  10. LIPITOR [Concomitant]
     Indication: BLOOD CHOLESTEROL
     Route: 048
  11. FOLIC ACID [Concomitant]
     Indication: VITAMIN SUPPLEMENTATION
     Route: 048
  12. CLONIDINE [Concomitant]
     Indication: BLOOD PRESSURE
     Route: 048
  13. MAXZIDE [Concomitant]
     Indication: BLOOD PRESSURE
     Route: 048
  14. COREG [Concomitant]
     Indication: BLOOD PRESSURE
     Route: 048
  15. ACTONEL [Concomitant]
     Indication: OSTEOPOROSIS PROPHYLAXIS
     Route: 048

REACTIONS (2)
  - COLONIC POLYP [None]
  - HAEMORRHAGE [None]
